FAERS Safety Report 6376076-1 (Version None)
Quarter: 2009Q3

REPORT INFORMATION
  Report Type: 
  Country: None (occurrence: None)
  Receive Date: 20090918
  Receipt Date: 20090917
  Transmission Date: 20100115
  Serious: Yes (Hospitalization)
  Sender: FDA-Public Use
  Company Number: WAES 0909USA01882

PATIENT
  Age: 73 Year
  Sex: Female

DRUGS (6)
  1. ZETIA [Suspect]
     Indication: HYPERCHOLESTEROLAEMIA
     Dosage: 10 MG/DAILY PO
     Route: 048
     Dates: start: 20080729, end: 20080819
  2. AMLODIPINE BESYLATE [Concomitant]
  3. GLYBURIDE [Concomitant]
  4. PIOGLITAZONE HCL [Concomitant]
  5. PITAVASTATIN CALCIUM [Concomitant]
  6. VOGLIBOSE [Concomitant]

REACTIONS (1)
  - CEREBRAL INFARCTION [None]
